FAERS Safety Report 7069925-5 (Version None)
Quarter: 2010Q4

REPORT INFORMATION
  Report Type: 
  Country: None (occurrence: None)
  Receive Date: 20101028
  Receipt Date: 20100806
  Transmission Date: 20110411
  Serious: No
  Sender: FDA-Public Use
  Company Number: US-WYE-H16648710

PATIENT
  Age: 41 Year
  Sex: Female
  Weight: 65.83 kg

DRUGS (1)
  1. ADVIL MIGRAINE LIQUI-GELS [Suspect]
     Indication: MIGRAINE
     Dosage: 2 CAPSULE EVERY 1 TOT
     Route: 048
     Dates: start: 20100601, end: 20100601

REACTIONS (1)
  - DRUG INEFFECTIVE [None]
